FAERS Safety Report 7537914-X (Version None)
Quarter: 2011Q2

REPORT INFORMATION
  Report Type: 
  Country: None (occurrence: None)
  Receive Date: 20110609
  Receipt Date: 20110526
  Transmission Date: 20111010
  Serious: Yes (Other)
  Sender: FDA-Public Use
  Company Number: US-SANOFI-AVENTIS-2011SA035749

PATIENT
  Sex: Female

DRUGS (3)
  1. NOVOLOG [Concomitant]
  2. SOLOSTAR [Suspect]
     Dosage: 10 UNITS IN THE AM AND 7 UNITS IN THE PM.
     Route: 058
     Dates: start: 20080101
  3. LANTUS [Suspect]
     Dosage: 10 UNITS IN THE AM AND 7 UNITS IN THE PM.
     Route: 058
     Dates: start: 20080101

REACTIONS (1)
  - BLINDNESS [None]
